FAERS Safety Report 6468669-8 (Version None)
Quarter: 2009Q4

REPORT INFORMATION
  Report Type: 
  Country: None (occurrence: None)
  Receive Date: 20091203
  Receipt Date: 20091126
  Transmission Date: 20100525
  Serious: Yes (Other)
  Sender: FDA-Public Use
  Company Number: CH-ROCHE-671157

PATIENT
  Sex: Female

DRUGS (7)
  1. XELODA [Suspect]
     Route: 065
  2. NEXIUM [Concomitant]
  3. ZOMETA [Concomitant]
  4. NEUPOGEN [Concomitant]
  5. IXEMPRA KIT [Concomitant]
  6. TEMESTA [Concomitant]
  7. BENADON [Concomitant]

REACTIONS (2)
  - CONJUNCTIVITIS [None]
  - MACULOPATHY [None]
